FAERS Safety Report 13961851 (Version 1)
Quarter: 2017Q3

REPORT INFORMATION
  Report Type: Spontaneous
  Country: US (occurrence: US)
  Receive Date: 20170912
  Receipt Date: 20170912
  Transmission Date: 20171128
  Serious: No
  Sender: FDA-Public Use
  Company Number: US-MISSION PHARMACAL COMPANY-2025925

PATIENT
  Age: 26 Year
  Sex: Female

DRUGS (1)
  1. THIOLA [Suspect]
     Active Substance: TIOPRONIN
     Indication: CYSTINURIA
     Route: 065
     Dates: start: 20170829

REACTIONS (7)
  - Vomiting [Unknown]
  - Pharyngeal oedema [Unknown]
  - Dizziness [Unknown]
  - Dysphagia [Unknown]
  - Tremor [Unknown]
  - Drug dose omission [Unknown]
  - Pain [Unknown]
